FAERS Safety Report 9232054 (Version 1)
Quarter: 2013Q2

REPORT INFORMATION
  Report Type: Spontaneous
  Country: US (occurrence: US)
  Receive Date: 20130415
  Receipt Date: 20130415
  Transmission Date: 20140414
  Serious: No
  Sender: FDA-Public Use
  Company Number: US-PFIZER INC-2013113690

PATIENT
  Age: 77 Year
  Sex: Male
  Weight: 79 kg

DRUGS (4)
  1. LATANOPROST [Suspect]
     Indication: INTRAOCULAR PRESSURE INCREASED
     Dosage: ONE DROP IN BOTH EYES, 1X/DAY
     Route: 047
     Dates: start: 2012
  2. AMLODIPINE [Concomitant]
     Dosage: UNK
  3. COUMADINE [Concomitant]
     Dosage: UNK
  4. METOPROLOL [Concomitant]
     Dosage: UNK

REACTIONS (2)
  - Drug ineffective [Not Recovered/Not Resolved]
  - Expired drug administered [Unknown]
